FAERS Safety Report 25145999 (Version 2)
Quarter: 2025Q2

REPORT INFORMATION
  Report Type: Spontaneous
  Country: US (occurrence: US)
  Receive Date: 20250401
  Receipt Date: 20250401
  Transmission Date: 20250717
  Serious: Yes (Disabling, Other)
  Sender: GILEAD
  Company Number: US-GILEAD-2025-0708591

PATIENT
  Age: 56 Year
  Sex: Female
  Weight: 65.76 kg

DRUGS (8)
  1. TRODELVY [Suspect]
     Active Substance: SACITUZUMAB GOVITECAN-HZIY
     Indication: Breast cancer metastatic
     Route: 065
     Dates: start: 20250306
  2. TRODELVY [Suspect]
     Active Substance: SACITUZUMAB GOVITECAN-HZIY
     Route: 065
     Dates: start: 20250313
  3. LETROZOLE [Concomitant]
     Active Substance: LETROZOLE
     Dosage: UNK, QD
  4. ZOMETA [Concomitant]
     Active Substance: ZOLEDRONIC ACID
  5. OMEPRAZOLE [Concomitant]
     Active Substance: OMEPRAZOLE
  6. ASPIRIN [Concomitant]
     Active Substance: ASPIRIN
  7. VITAMIN D3 [Concomitant]
     Active Substance: CHOLECALCIFEROL
     Dosage: UNK, QD
  8. DEXAMETHASONE [Concomitant]
     Active Substance: DEXAMETHASONE

REACTIONS (6)
  - Unresponsive to stimuli [Recovered/Resolved]
  - Diarrhoea [Recovered/Resolved]
  - Dehydration [Recovered/Resolved]
  - Dizziness [Recovered/Resolved]
  - Feeling hot [Unknown]
  - Tremor [Unknown]

NARRATIVE: CASE EVENT DATE: 20250318
